FAERS Safety Report 22075314 (Version 3)
Quarter: 2023Q2

REPORT INFORMATION
  Report Type: Spontaneous
  Country: US (occurrence: US)
  Receive Date: 20230308
  Receipt Date: 20230403
  Transmission Date: 20230722
  Serious: No
  Sender: FDA-Public Use
  Company Number: US-BRISTOL-MYERS SQUIBB COMPANY-2023-033745

PATIENT
  Age: 76 Year
  Sex: Female
  Weight: 68 kg

DRUGS (1)
  1. REVLIMID [Suspect]
     Active Substance: LENALIDOMIDE
     Indication: Plasma cell myeloma
     Dosage: FREQ: 21DAYS ON 7DAYS OFF.
     Route: 048
     Dates: start: 20230301

REACTIONS (3)
  - Asthenia [Recovering/Resolving]
  - Tooth infection [Recovering/Resolving]
  - Diarrhoea [Recovering/Resolving]
